FAERS Safety Report 6383775-4 (Version None)
Quarter: 2009Q4

REPORT INFORMATION
  Report Type: 
  Country: None (occurrence: None)
  Receive Date: 20091001
  Receipt Date: 20090925
  Transmission Date: 20100525
  Serious: Yes (Other)
  Sender: FDA-Public Use
  Company Number: US-BRISTOL-MYERS SQUIBB COMPANY-14792436

PATIENT
  Age: 38 Year
  Sex: Male

DRUGS (4)
  1. ERBITUX [Suspect]
     Indication: RECTAL CANCER STAGE IV
     Dosage: 28 CHEMO TREATMENT
  2. IRINOTECAN HCL [Concomitant]
  3. LEUCOVORIN CALCIUM [Concomitant]
  4. FLUOROURACIL [Concomitant]
     Dosage: 5-FU BOLUS

REACTIONS (4)
  - ASCITES [None]
  - DERMATITIS ACNEIFORM [None]
  - OEDEMA PERIPHERAL [None]
  - PAIN [None]
